FAERS Safety Report 6294343-7 (Version None)
Quarter: 2009Q3

REPORT INFORMATION
  Report Type: 
  Country: None (occurrence: None)
  Receive Date: 20090803
  Receipt Date: 20090722
  Transmission Date: 20100115
  Serious: Yes (Other)
  Sender: FDA-Public Use
  Company Number: CA-PFIZER INC-2009244950

PATIENT
  Age: 61 Year

DRUGS (6)
  1. CADUET [Suspect]
  2. HYDROCHLOROTHIAZIDE [Concomitant]
     Dosage: UNK
  3. METOPROLOL [Concomitant]
     Dosage: UNK
  4. AVAPRO [Concomitant]
     Dosage: UNK
  5. IRBESARTAN [Concomitant]
     Dosage: UNK
  6. METFORMIN HCL [Concomitant]
     Dosage: UNK

REACTIONS (2)
  - CHEST PAIN [None]
  - HYPERTENSION [None]
